FAERS Safety Report 9146052 (Version 1)
Quarter: 2013Q1

REPORT INFORMATION
  Report Type: Spontaneous
  Country: US (occurrence: None)
  Receive Date: 20130207
  Receipt Date: 20130207
  Transmission Date: 20140127
  Serious: Yes (Death)
  Sender: FDA-Public Use
  Company Number: 2013010176

PATIENT
  Age: 29 Year
  Sex: Male

DRUGS (5)
  1. ZOLPIDEM (ZOLPIDEM) [Suspect]
     Route: 048
  2. HYDROMORPHONE [Suspect]
     Route: 048
  3. TRAZODONE (TRAZODONE) [Suspect]
     Route: 048
  4. ALPRAZOLAM (ALPRAZOLAM) [Suspect]
     Route: 048
  5. MIRTAZAPINE (MIRTAZAPINE) [Suspect]
     Route: 048

REACTIONS (2)
  - Respiratory arrest [None]
  - Cardiac arrest [None]
